FAERS Safety Report 8786994 (Version 1)
Quarter: 2012Q4

REPORT INFORMATION
  Report Type: Report from Study
  Country: US (occurrence: US)
  Receive Date: 20120914
  Receipt Date: 20120914
  Transmission Date: 20130627
  Serious: No
  Sender: FDA-Public Use
  Company Number: US-VERTEX PHARMACEUTICAL INC.-AE-2012-011042

PATIENT
  Age: 50 Year
  Sex: Male
  Weight: 62.73 kg

DRUGS (9)
  1. INCIVEK [Suspect]
     Indication: HEPATITIS C
     Route: 048
  2. PEGASYS [Concomitant]
     Indication: HEPATITIS C
  3. RIBAPAK PAK [Concomitant]
     Indication: HEPATITIS C
  4. PROCRIT [Concomitant]
  5. POTASSIUM [Concomitant]
  6. WARFARIN [Concomitant]
  7. SPIRORNO/ HCTZ [Concomitant]
  8. METOPROLOL [Concomitant]
  9. AMLODIPINE [Concomitant]

REACTIONS (6)
  - Arrhythmia [Unknown]
  - Hypotension [Unknown]
  - Abdominal discomfort [Unknown]
  - Dry mouth [Unknown]
  - Fatigue [Unknown]
  - Anaemia [Unknown]
